FAERS Safety Report 12493477 (Version 1)
Quarter: 2016Q2

REPORT INFORMATION
  Report Type: Spontaneous
  Country: None (occurrence: US)
  Receive Date: 20160623
  Receipt Date: 20160623
  Transmission Date: 20160815
  Serious: No
  Sender: FDA-Public Use
  Company Number: US-MERZ NORTH AMERICA, INC.-16MRZ-00374

PATIENT
  Age: 55 Year
  Sex: Female

DRUGS (1)
  1. NAFTIN [Suspect]
     Active Substance: NAFTIFINE HYDROCHLORIDE
     Indication: FUNGAL INFECTION
     Dates: start: 20140520, end: 20160201

REACTIONS (5)
  - Erythema [None]
  - Application site pain [None]
  - Hypersensitivity [None]
  - Skin exfoliation [None]
  - Pruritus [None]
